FAERS Safety Report 19266748 (Version 1)
Quarter: 2021Q2

REPORT INFORMATION
  Report Type: Spontaneous
  Country: US (occurrence: US)
  Receive Date: 20210518
  Receipt Date: 20210518
  Transmission Date: 20210717
  Serious: No
  Sender: FDA-Public Use
  Company Number: US-JNJFOC-20210501975

PATIENT
  Sex: Male

DRUGS (1)
  1. MENS ROGAINE EXTRA STRENGTH [Suspect]
     Active Substance: MINOXIDIL
     Indication: ALOPECIA
     Dosage: APPLIED LIBERALLY ALL OVER HEAD. TWICE A DAY
     Route: 061

REACTIONS (4)
  - Off label use [Unknown]
  - Product administered at inappropriate site [Unknown]
  - Alopecia [Not Recovered/Not Resolved]
  - Contraindicated product administered [Unknown]
